FAERS Safety Report 12181467 (Version 1)
Quarter: 2016Q1

REPORT INFORMATION
  Report Type: Spontaneous
  Country: US (occurrence: US)
  Receive Date: 20160315
  Receipt Date: 20160315
  Transmission Date: 20160526
  Serious: Yes (Death, Hospitalization)
  Sender: FDA-Public Use
  Company Number: PHEH2016US006113

PATIENT
  Age: 18 Year
  Sex: Female

DRUGS (1)
  1. PROMACTA [Suspect]
     Active Substance: ELTROMBOPAG OLAMINE
     Indication: IMMUNE THROMBOCYTOPENIC PURPURA
     Dosage: 50 MG, QD
     Route: 048

REACTIONS (9)
  - Brain herniation [Unknown]
  - Photophobia [Unknown]
  - Mental status changes [Unknown]
  - Haemorrhage intracranial [Unknown]
  - Brain oedema [Unknown]
  - Seizure [Unknown]
  - Brain death [Unknown]
  - Headache [Unknown]
  - Cerebral venous thrombosis [Fatal]

NARRATIVE: CASE EVENT DATE: 20160310
